FAERS Safety Report 6750060-8 (Version None)
Quarter: 2010Q2

REPORT INFORMATION
  Report Type: 
  Country: None (occurrence: None)
  Receive Date: 20100601
  Receipt Date: 20100519
  Transmission Date: 20101027
  Serious: Yes (Other)
  Sender: FDA-Public Use
  Company Number: CA-PFIZER INC-2010048855

PATIENT
  Age: 21 Year
  Sex: Female

DRUGS (2)
  1. ZELDOX [Suspect]
     Indication: BIPOLAR DISORDER
     Dosage: 60 MG, 2X/DAY
     Dates: start: 20100310
  2. QUETIAPINE [Suspect]
     Indication: MAJOR DEPRESSION
     Dosage: 300 MG, 1X/DAY AT BEDTIME
     Dates: end: 20100301

REACTIONS (3)
  - DRUG WITHDRAWAL SYNDROME [None]
  - INSOMNIA [None]
  - MOOD SWINGS [None]
